FAERS Safety Report 7099925-0 (Version None)
Quarter: 2010Q4

REPORT INFORMATION
  Report Type: 
  Country: None (occurrence: None)
  Receive Date: 20101112
  Receipt Date: 20090120
  Transmission Date: 20110411
  Serious: No
  Sender: FDA-Public Use
  Company Number: US-KINGPHARMUSA00001-K200900069

PATIENT
  Age: 26 Year
  Sex: Female

DRUGS (2)
  1. LEVOXYL [Suspect]
     Dosage: 125 MCG, UNK
     Dates: start: 19930101, end: 19930101
  2. PERCODAN                           /00090001/ [Concomitant]

REACTIONS (1)
  - URTICARIA [None]
